FAERS Safety Report 5287354-1 (Version None)
Quarter: 2007Q1

REPORT INFORMATION
  Report Type: 
  Country: None (occurrence: None)
  Receive Date: 20070116
  Receipt Date: 20061122
  Transmission Date: 20070707
  Serious: No
  Sender: FDA-Public Use
  Company Number: 2006SP004156

PATIENT
  Sex: Male

DRUGS (5)
  1. LUNESTA [Suspect]
     Indication: INSOMNIA
     Dosage: 3 MG;1X;ORAL
     Route: 048
     Dates: start: 20061121, end: 20061121
  2. METFORMIN HCL [Concomitant]
  3. PLENDIL [Concomitant]
  4. ATORVASTATIN CALCIUM [Concomitant]
  5. AMBIEN [Concomitant]

REACTIONS (3)
  - DRUG INEFFECTIVE [None]
  - DYSGEUSIA [None]
  - MIDDLE INSOMNIA [None]
